FAERS Safety Report 8247795-7 (Version None)
Quarter: 2012Q1

REPORT INFORMATION
  Report Type: 
  Country: None (occurrence: None)
  Receive Date: 20120330
  Receipt Date: 20120326
  Transmission Date: 20120608
  Serious: Yes (Other)
  Sender: FDA-Public Use
  Company Number: US-TEVA-330612USA

PATIENT
  Age: 58 Year
  Sex: Female

DRUGS (2)
  1. DAUNORUBICIN HCL [Suspect]
     Indication: ACUTE MYELOID LEUKAEMIA
     Dosage: 1.5 MG/KG/DAY FOR 3 DAYS
     Route: 065
  2. CYTARABINE [Suspect]
     Indication: ACUTE MYELOID LEUKAEMIA
     Dosage: 2.6 MG/KG/DAY FOR 7 DAYS
     Route: 065

REACTIONS (3)
  - NEUTROPENIA [None]
  - TOXICITY TO VARIOUS AGENTS [None]
  - HIDRADENITIS [None]
